FAERS Safety Report 8697550 (Version 4)
Quarter: 2014Q1

REPORT INFORMATION
  Report Type: Spontaneous
  Country: US (occurrence: US)
  Receive Date: 20120801
  Receipt Date: 20140205
  Transmission Date: 20141002
  Serious: Yes (Hospitalization)
  Sender: FDA-Public Use
  Company Number: US-ASTRAZENECA-2012SE51323

PATIENT
  Age: 54 Year
  Sex: Female

DRUGS (4)
  1. CRESTOR [Suspect]
     Indication: BLOOD CHOLESTEROL INCREASED
     Dosage: 20 MG, CUTTING PILLS IN HALF, EVERY OTHER MONTH
     Route: 048
  2. CRESTOR [Suspect]
     Indication: BLOOD TRIGLYCERIDES ABNORMAL
     Dosage: 20 MG, CUTTING PILLS IN HALF, EVERY OTHER MONTH
     Route: 048
  3. TRIPLEX [Concomitant]
  4. 13 OTHER MEDICATIONS/15 PRESCRIPTIONS [Concomitant]

REACTIONS (5)
  - Pneumonia fungal [Unknown]
  - Malaise [Unknown]
  - Laboratory test abnormal [Unknown]
  - Blood cholesterol increased [Unknown]
  - Intentional drug misuse [Unknown]
